FAERS Safety Report 6552865-5 (Version None)
Quarter: 2010Q1

REPORT INFORMATION
  Report Type: 
  Country: None (occurrence: None)
  Receive Date: 20100122
  Receipt Date: 20100112
  Transmission Date: 20100710
  Serious: Yes (Death, Life-Threatening, Hospitalization, Other)
  Sender: FDA-Public Use
  Company Number: 2009-03207

PATIENT
  Age: 48 Year
  Sex: Male
  Weight: 63 kg

DRUGS (26)
  1. VELCADE [Suspect]
     Indication: MULTIPLE MYELOMA
     Dosage: 2.4 MG, INTRAVENOUS; 1.8 MG, INTRAVENOUS, 1.8 MG,
     Route: 042
     Dates: start: 20090123, end: 20090223
  2. VELCADE [Suspect]
     Indication: MULTIPLE MYELOMA
     Dosage: 2.4 MG, INTRAVENOUS; 1.8 MG, INTRAVENOUS, 1.8 MG,
     Route: 042
     Dates: start: 20090310, end: 20090728
  3. VELCADE [Suspect]
     Indication: MULTIPLE MYELOMA
     Dosage: 2.4 MG, INTRAVENOUS; 1.8 MG, INTRAVENOUS, 1.8 MG,
     Route: 042
     Dates: start: 20090825, end: 20090825
  4. ALLOPURINOL [Concomitant]
  5. FAMOTIDINE [Concomitant]
  6. ALENDRONATE SODIUM [Concomitant]
  7. MAGNESIUM OXIDE (MAGNESIUM OXIDE) [Concomitant]
  8. VALTREX [Concomitant]
  9. SULFAMETHOXAZOLE AND TRIMETHOPRIM [Concomitant]
  10. FLUCONAZOLE [Concomitant]
  11. LOXOPROFEN SODIUM (LOXOPROFEN SODIUM) [Concomitant]
  12. LENDORM [Concomitant]
  13. THALIDOMIDE [Concomitant]
  14. RED BLOOD CELLS [Concomitant]
  15. DEXAMETHASONE SODIUM PHOSPHATE [Concomitant]
  16. NEUPOGEN [Concomitant]
  17. VENOGLOBULIN-I [Concomitant]
  18. CEFTAZIDIME [Concomitant]
  19. ZOSYN [Concomitant]
  20. CISPLATIN [Concomitant]
  21. VINCRISTINE [Concomitant]
  22. PEPLOMYCIN (PEPLOMYCIN) [Concomitant]
  23. OXYGEN (OXYGEN) [Concomitant]
  24. GLYCERYL TRINITRATE (GLYCERYL TRINITRATE) [Concomitant]
  25. LOSARTAN POTASSIUM [Concomitant]
  26. DOPAMINE HCL [Concomitant]

REACTIONS (12)
  - ABDOMINAL PAIN UPPER [None]
  - ABNORMAL BEHAVIOUR [None]
  - ACID BASE BALANCE ABNORMAL [None]
  - BLOOD UREA INCREASED [None]
  - CARDIAC FAILURE ACUTE [None]
  - DELIRIUM [None]
  - ELECTROLYTE IMBALANCE [None]
  - MALIGNANT NEOPLASM PROGRESSION [None]
  - MULTIPLE MYELOMA [None]
  - NEUROPATHY PERIPHERAL [None]
  - NO THERAPEUTIC RESPONSE [None]
  - PULMONARY CONGESTION [None]
